FAERS Safety Report 24423045 (Version 1)
Quarter: 2024Q4

REPORT INFORMATION
  Report Type: Spontaneous
  Country: US (occurrence: US)
  Receive Date: 20241010
  Receipt Date: 20241010
  Transmission Date: 20250115
  Serious: Yes (Other)
  Sender: RANBAXY
  Company Number: US-SUN PHARMACEUTICAL INDUSTRIES LTD-2024R1-472351

PATIENT
  Age: 51 Year
  Sex: Female

DRUGS (2)
  1. ALLOPURINOL [Suspect]
     Active Substance: ALLOPURINOL
     Indication: Gout
     Dosage: UNK
     Route: 065
  2. ALLOPURINOL [Suspect]
     Active Substance: ALLOPURINOL
     Indication: Cholangitis

REACTIONS (7)
  - Eosinophilia [Unknown]
  - Hypertransaminasaemia [Unknown]
  - Lymphocytosis [Unknown]
  - Acute kidney injury [Unknown]
  - Eczema [Unknown]
  - Epidermal necrosis [Unknown]
  - Drug reaction with eosinophilia and systemic symptoms [Unknown]
